FAERS Safety Report 9181836 (Version 1)
Quarter: 2013Q1

REPORT INFORMATION
  Report Type: Spontaneous
  Country: IT (occurrence: IT)
  Receive Date: 20130322
  Receipt Date: 20130322
  Transmission Date: 20140127
  Serious: Yes (Other)
  Sender: FDA-Public Use
  Company Number: IT-JNJFOC-20130307957

PATIENT
  Sex: Female

DRUGS (6)
  1. DOXORUBICIN HYDROCHLORIDE [Suspect]
     Indication: UTERINE CANCER
     Dosage: 45 MG/MQ, DAY 1 EVERY 21 DAYS FOR 3 CYCLES
     Route: 042
  2. DOXORUBICIN HYDROCHLORIDE [Suspect]
     Indication: ADENOCARCINOMA OF THE CERVIX
     Dosage: 45 MG/MQ, DAY 1 EVERY 21 DAYS FOR 3 CYCLES
     Route: 042
  3. CISPLATIN [Suspect]
     Indication: UTERINE CANCER
     Dosage: 70 MG/MQ, DAY 1 EVERY 21 DAYS FOR 3 CYCLES
     Route: 065
  4. CISPLATIN [Suspect]
     Indication: ADENOCARCINOMA OF THE CERVIX
     Dosage: 70 MG/MQ, DAY 1 EVERY 21 DAYS FOR 3 CYCLES
     Route: 065
  5. PACLITAXEL [Suspect]
     Indication: UTERINE CANCER
     Dosage: 150 MG/MQ  DAY 1 EVERY 21 DAYS FOR 3 CYCLES
     Route: 065
  6. PACLITAXEL [Suspect]
     Indication: ADENOCARCINOMA OF THE CERVIX
     Dosage: 150 MG/MQ  DAY 1 EVERY 21 DAYS FOR 3 CYCLES
     Route: 065

REACTIONS (3)
  - Neutropenia [Unknown]
  - Haematotoxicity [Unknown]
  - Off label use [Unknown]
